FAERS Safety Report 7543092-3 (Version None)
Quarter: 2011Q2

REPORT INFORMATION
  Report Type: 
  Country: None (occurrence: None)
  Receive Date: 20110613
  Receipt Date: 20110606
  Transmission Date: 20111010
  Serious: Yes (Hospitalization, Other)
  Sender: FDA-Public Use
  Company Number: PHHO2010AT14559

PATIENT
  Sex: Female

DRUGS (5)
  1. APREDNISLON [Concomitant]
  2. MYFORTIC [Suspect]
     Indication: RENAL TRANSPLANT
     Dosage: UNK
     Route: 048
     Dates: start: 20100911, end: 20100916
  3. MYFORTIC [Suspect]
     Dosage: UNK
     Dates: start: 20100917
  4. UNASYN [Suspect]
     Dosage: 3 G, QD
     Route: 042
     Dates: start: 20100915, end: 20100918
  5. PROGRAF [Suspect]
     Indication: RENAL TRANSPLANT
     Dosage: UNK
     Route: 048
     Dates: start: 20100911

REACTIONS (3)
  - VOMITING [None]
  - DIABETES MELLITUS [None]
  - COMPLICATIONS OF TRANSPLANTED KIDNEY [None]
